FAERS Safety Report 5481406-9 (Version None)
Quarter: 2007Q4

REPORT INFORMATION
  Report Type: 
  Country: None (occurrence: None)
  Receive Date: 20071010
  Receipt Date: 20071005
  Transmission Date: 20080405
  Serious: Yes (Other)
  Sender: FDA-Public Use
  Company Number: A0686362A

PATIENT
  Sex: Female

DRUGS (3)
  1. TYKERB [Suspect]
     Indication: BREAST CANCER
     Dosage: 1250MG PER DAY
     Route: 048
  2. XELODA [Suspect]
     Indication: BREAST CANCER
  3. NO CONCURRENT MEDICATION [Concomitant]

REACTIONS (2)
  - DISEASE PROGRESSION [None]
  - PERICARDIAL EFFUSION [None]
